FAERS Safety Report 11771513 (Version 1)
Quarter: 2015Q4

REPORT INFORMATION
  Report Type: Spontaneous
  Country: FI (occurrence: FI)
  Receive Date: 20151124
  Receipt Date: 20151124
  Transmission Date: 20160304
  Serious: Yes (Hospitalization)
  Sender: FDA-Public Use
  Company Number: FI-ROCHE-1665659

PATIENT
  Age: 72 Year
  Sex: Male

DRUGS (6)
  1. CANDESARTAN [Concomitant]
     Active Substance: CANDESARTAN
  2. MABTHERA [Suspect]
     Active Substance: RITUXIMAB
     Indication: CHRONIC LYMPHOCYTIC LEUKAEMIA
     Route: 042
     Dates: start: 20151112
  3. DIGOXIN. [Concomitant]
     Active Substance: DIGOXIN
  4. MAREVAN FORTE [Concomitant]
     Active Substance: WARFARIN SODIUM
  5. BISOPROLOL [Concomitant]
     Active Substance: BISOPROLOL
  6. LEVACT (FINLAND) [Concomitant]
     Active Substance: BENDAMUSTINE HYDROCHLORIDE

REACTIONS (5)
  - C-reactive protein increased [Recovered/Resolved]
  - Hypotension [Recovered/Resolved]
  - Pyrexia [Recovered/Resolved]
  - Stomatitis [Recovered/Resolved]
  - Urticaria [Recovered/Resolved]

NARRATIVE: CASE EVENT DATE: 20151112
